FAERS Safety Report 5776924-X (Version None)
Quarter: 2008Q2

REPORT INFORMATION
  Report Type: 
  Country: None (occurrence: None)
  Receive Date: 20080618
  Receipt Date: 20080610
  Transmission Date: 20081010
  Serious: Yes (Life-Threatening, Hospitalization, Other)
  Sender: FDA-Public Use
  Company Number: B0522193A

PATIENT
  Age: 29 Year
  Sex: Male
  Weight: 59 kg

DRUGS (3)
  1. ZYBAN [Suspect]
     Indication: DEPRESSION
     Dosage: 150MG TWICE PER DAY
     Route: 048
     Dates: start: 20080513, end: 20080523
  2. VENLAFAXINE HCL [Concomitant]
     Indication: DEPRESSION
     Dosage: 150MG TWICE PER DAY
     Route: 048
     Dates: start: 20080212, end: 20080523
  3. OLANZAPINE [Concomitant]
     Indication: DEPRESSION
     Dosage: 7.5MG AT NIGHT
     Route: 048
     Dates: start: 20080226, end: 20080523

REACTIONS (4)
  - CONVULSION [None]
  - DYSKINESIA [None]
  - FALL [None]
  - MYOCLONUS [None]
